FAERS Safety Report 9456090 (Version 1)
Quarter: 2013Q3

REPORT INFORMATION
  Report Type: Spontaneous
  Country: GB (occurrence: None)
  Receive Date: 20130808
  Receipt Date: 20130808
  Transmission Date: 20140515
  Serious: Yes (Other)
  Sender: FDA-Public Use
  Company Number: AUR-APL-2013-06459

PATIENT
  Age: 78 Year
  Sex: Male

DRUGS (1)
  1. PIOGLITAZONE (PIOGLITAZONE) [Suspect]
     Dosage: ORAL, ONGOING

REACTIONS (1)
  - Blood urine present [None]
